FAERS Safety Report 5486528-4 (Version None)
Quarter: 2007Q3

REPORT INFORMATION
  Report Type: 
  Country: None (occurrence: None)
  Receive Date: 20070919
  Receipt Date: 20070607
  Transmission Date: 20080115
  Serious: No
  Sender: FDA-Public Use
  Company Number: 2007RL000265

PATIENT
  Age: 71 Year
  Sex: Female
  Weight: 97.5234 kg

DRUGS (8)
  1. OMACOR [Suspect]
     Indication: BLOOD CHOLESTEROL INCREASED
     Dosage: 4 GM;QD;PO; 3 GM;QD;PO
     Route: 048
     Dates: start: 20070501, end: 20070101
  2. OMACOR [Suspect]
     Indication: BLOOD TRIGLYCERIDES INCREASED
     Dosage: 4 GM;QD;PO; 3 GM;QD;PO
     Route: 048
     Dates: start: 20070501, end: 20070101
  3. OMACOR [Suspect]
     Indication: BLOOD CHOLESTEROL INCREASED
     Dosage: 4 GM;QD;PO; 3 GM;QD;PO
     Route: 048
     Dates: start: 20070101
  4. OMACOR [Suspect]
     Indication: BLOOD TRIGLYCERIDES INCREASED
     Dosage: 4 GM;QD;PO; 3 GM;QD;PO
     Route: 048
     Dates: start: 20070101
  5. ASPIRIN [Concomitant]
  6. VITAMIN E / 00110501/ [Concomitant]
  7. LISINOPRIL [Concomitant]
  8. METOPROLOL [Concomitant]

REACTIONS (3)
  - HEADACHE [None]
  - INTENTIONAL DRUG MISUSE [None]
  - OFF LABEL USE [None]
